FAERS Safety Report 15704781 (Version 4)
Quarter: 2019Q3

REPORT INFORMATION
  Report Type: Spontaneous
  Country: CA (occurrence: CA)
  Receive Date: 20181210
  Receipt Date: 20190919
  Transmission Date: 20191004
  Serious: Yes (Hospitalization, Other)
  Sender: FDA-Public Use
  Company Number: CA-TEVA-2018-CA-985756

PATIENT
  Age: 31 Year
  Sex: Female

DRUGS (37)
  1. THIOPENTAL SODIUM. [Suspect]
     Active Substance: THIOPENTAL SODIUM
     Indication: ENDOTRACHEAL INTUBATION
     Route: 042
  2. THIOPENTAL [Suspect]
     Active Substance: THIOPENTAL
     Indication: STATUS EPILEPTICUS
     Route: 042
  3. PROPOFOL. [Suspect]
     Active Substance: PROPOFOL
     Route: 042
  4. DEXTROSE 50% [Suspect]
     Active Substance: DEXTROSE
     Indication: PRODUCT USED FOR UNKNOWN INDICATION
     Route: 042
  5. DIAZEPAM. [Suspect]
     Active Substance: DIAZEPAM
     Indication: STATUS EPILEPTICUS
     Route: 065
  6. THIOPENTAL [Suspect]
     Active Substance: THIOPENTAL
     Route: 042
  7. THIOPENTAL [Suspect]
     Active Substance: THIOPENTAL
     Route: 042
  8. PHENYLEPHRINE [Suspect]
     Active Substance: PHENYLEPHRINE HYDROCHLORIDE
     Indication: HYPOTENSION
     Route: 065
  9. SUCCINYLCHOLINE [Suspect]
     Active Substance: SUCCINYLCHOLINE
     Indication: ENDOTRACHEAL INTUBATION
     Route: 042
  10. MAGNESIUM SULFATE. [Suspect]
     Active Substance: MAGNESIUM SULFATE
     Indication: STATUS EPILEPTICUS
     Route: 065
  11. PHENYTOIN. [Suspect]
     Active Substance: PHENYTOIN
     Indication: STATUS EPILEPTICUS
     Route: 065
  12. PHENYTOIN. [Suspect]
     Active Substance: PHENYTOIN
     Indication: SEIZURE
  13. ATIVAN [Suspect]
     Active Substance: LORAZEPAM
     Indication: STATUS EPILEPTICUS
  14. METOCLOPRAMIDE. [Suspect]
     Active Substance: METOCLOPRAMIDE
     Indication: PROPHYLAXIS
     Route: 042
  15. THIOPENTAL [Suspect]
     Active Substance: THIOPENTAL
     Indication: ENDOTRACHEAL INTUBATION
     Route: 042
  16. THIOPENTAL [Suspect]
     Active Substance: THIOPENTAL
     Indication: SEIZURE
     Route: 042
  17. DEXTROSE 5% INJECTION USP [Suspect]
     Active Substance: DEXTROSE\WATER
     Indication: PRODUCT USED FOR UNKNOWN INDICATION
     Route: 042
  18. MIDAZOLAM [Suspect]
     Active Substance: MIDAZOLAM HYDROCHLORIDE
     Indication: SEIZURE
  19. PROPOFOL. [Suspect]
     Active Substance: PROPOFOL
     Indication: STATUS EPILEPTICUS
     Route: 042
  20. SODIUM CITRATE. [Suspect]
     Active Substance: SODIUM CITRATE
     Indication: PROPHYLAXIS
     Route: 048
  21. LORAZEPAM. [Suspect]
     Active Substance: LORAZEPAM
     Indication: STATUS EPILEPTICUS
     Route: 065
  22. DIAZEPAM. [Suspect]
     Active Substance: DIAZEPAM
     Indication: SEIZURE
     Route: 065
  23. SUCCINYLCHOLINE CHLORIDE. [Suspect]
     Active Substance: SUCCINYLCHOLINE CHLORIDE
     Indication: ENDOTRACHEAL INTUBATION
     Route: 042
  24. DOPAMINE [Suspect]
     Active Substance: DOPAMINE HYDROCHLORIDE
     Indication: HYPOTENSION
     Route: 065
  25. MIDAZOLAM [Suspect]
     Active Substance: MIDAZOLAM HYDROCHLORIDE
     Indication: STATUS EPILEPTICUS
     Route: 065
  26. PROPOFOL. [Suspect]
     Active Substance: PROPOFOL
     Indication: SEIZURE
     Route: 042
  27. THIOPENTAL [Suspect]
     Active Substance: THIOPENTAL
     Route: 042
  28. THIOPENTAL [Suspect]
     Active Substance: THIOPENTAL
     Route: 042
  29. THIOPENTAL [Suspect]
     Active Substance: THIOPENTAL
     Route: 042
  30. THIOPENTAL SODIUM. [Suspect]
     Active Substance: THIOPENTAL SODIUM
     Indication: STATUS EPILEPTICUS
     Route: 042
  31. THIOPENTAL SODIUM. [Suspect]
     Active Substance: THIOPENTAL SODIUM
     Route: 042
  32. MIDAZOLAM HYDROCHLORIDE. [Suspect]
     Active Substance: MIDAZOLAM HYDROCHLORIDE
     Route: 065
  33. PAROXETINE HYDROCHLORIDE. [Suspect]
     Active Substance: PAROXETINE HYDROCHLORIDE
     Indication: BIPOLAR DISORDER
     Route: 065
  34. ATIVAN [Suspect]
     Active Substance: LORAZEPAM
     Indication: BIPOLAR DISORDER
     Route: 065
  35. THIOPENTAL [Suspect]
     Active Substance: THIOPENTAL
     Route: 042
  36. THIOPENTAL [Suspect]
     Active Substance: THIOPENTAL
     Route: 042
  37. THIOPENTAL [Suspect]
     Active Substance: THIOPENTAL
     Route: 065

REACTIONS (23)
  - Electroencephalogram abnormal [Recovered/Resolved]
  - Exposure during pregnancy [Recovered/Resolved]
  - Clonus [Recovered/Resolved]
  - Status epilepticus [Recovered/Resolved]
  - Diabetes insipidus [Not Recovered/Not Resolved]
  - Blood bicarbonate decreased [Not Recovered/Not Resolved]
  - Hypotension [Not Recovered/Not Resolved]
  - Encephalopathy [Not Recovered/Not Resolved]
  - Off label use [Not Recovered/Not Resolved]
  - Oxygen saturation abnormal [Not Recovered/Not Resolved]
  - Foetal death [Not Recovered/Not Resolved]
  - Left ventricular dysfunction [Not Recovered/Not Resolved]
  - Blood pH decreased [Not Recovered/Not Resolved]
  - Loss of consciousness [Not Recovered/Not Resolved]
  - PCO2 increased [Not Recovered/Not Resolved]
  - Maternal exposure during pregnancy [Not Recovered/Not Resolved]
  - Blood calcium decreased [Not Recovered/Not Resolved]
  - Blood magnesium decreased [Not Recovered/Not Resolved]
  - PO2 increased [Not Recovered/Not Resolved]
  - Renal impairment [Not Recovered/Not Resolved]
  - Drug ineffective [Not Recovered/Not Resolved]
  - Renal ischaemia [Not Recovered/Not Resolved]
  - Seizure [Recovered/Resolved]
